FAERS Safety Report 5626946-4 (Version None)
Quarter: 2008Q1

REPORT INFORMATION
  Report Type: 
  Country: None (occurrence: None)
  Receive Date: 20080212
  Receipt Date: 20080201
  Transmission Date: 20080703
  Serious: Yes (Hospitalization)
  Sender: FDA-Public Use
  Company Number: CHNY2008GB00755

PATIENT
  Age: 30 Month
  Sex: Male
  Weight: 15.9 kg

DRUGS (1)
  1. TRIAMINIC DAY TIME COLD + COUGH (NCH)(DEXTROMETHORPHAN HYDROBROMIDE, P [Suspect]
     Indication: NASOPHARYNGITIS
     Dosage: 1 TSP, ONCE/SINGLE, ORAL
     Route: 048
     Dates: start: 20080131

REACTIONS (2)
  - NASOPHARYNGITIS [None]
  - VOMITING [None]
